FAERS Safety Report 18199403 (Version 3)
Quarter: 2020Q3

REPORT INFORMATION
  Report Type: Spontaneous
  Country: US (occurrence: US)
  Receive Date: 20200826
  Receipt Date: 20200901
  Transmission Date: 20201103
  Serious: Yes (Other)
  Sender: FDA-Public Use
  Company Number: US-PFIZER INC-2020328755

PATIENT
  Age: 55 Year
  Sex: Male

DRUGS (1)
  1. SIROLIMUS. [Suspect]
     Active Substance: SIROLIMUS
     Indication: PROPHYLAXIS AGAINST TRANSPLANT REJECTION
     Dosage: 1 MG, 1X/DAY [1 MG, TABLET, BY MOUTH, ONCE DAILY]
     Route: 048
     Dates: start: 20200814, end: 20200821

REACTIONS (7)
  - Hypersensitivity [Recovering/Resolving]
  - Rash macular [Recovering/Resolving]
  - Eye oedema [Recovering/Resolving]
  - Sleep disorder [Recovering/Resolving]
  - Headache [Recovering/Resolving]
  - Off label use [Unknown]
  - Product use in unapproved indication [Unknown]

NARRATIVE: CASE EVENT DATE: 202008
